FAERS Safety Report 12082837 (Version 2)
Quarter: 2016Q1

REPORT INFORMATION
  Report Type: Report from Study
  Country: DE (occurrence: DE)
  Receive Date: 20160217
  Receipt Date: 20160225
  Transmission Date: 20160526
  Serious: Yes (Hospitalization, Other)
  Sender: FDA-Public Use
  Company Number: PHHY2016DE019627

PATIENT
  Sex: Female
  Weight: 64 kg

DRUGS (3)
  1. EKLIRA GENUAIR [Concomitant]
     Active Substance: ACLIDINIUM BROMIDE
     Indication: CHRONIC OBSTRUCTIVE PULMONARY DISEASE
     Dosage: 322 UG, UNK
     Route: 055
  2. QVA149 [Suspect]
     Active Substance: INVESTIGATIONAL PRODUCT
     Indication: CHRONIC OBSTRUCTIVE PULMONARY DISEASE
     Dosage: 1 DF (50UG/110UG) (43/85 UG), QD
     Route: 055
     Dates: start: 201412, end: 201601
  3. INUVAIR [Concomitant]
     Active Substance: BECLOMETHASONE DIPROPIONATE\FORMOTEROL FUMARATE
     Indication: CHRONIC OBSTRUCTIVE PULMONARY DISEASE
     Dosage: 1 DF (100/6 UG), UNK
     Route: 055

REACTIONS (5)
  - Drug ineffective [Unknown]
  - Wheezing [Not Recovered/Not Resolved]
  - Mental disorder [Recovering/Resolving]
  - Dyspnoea exertional [Not Recovered/Not Resolved]
  - Grunting [Not Recovered/Not Resolved]

NARRATIVE: CASE EVENT DATE: 20151123
